FAERS Safety Report 6077280-2 (Version None)
Quarter: 2009Q1

REPORT INFORMATION
  Report Type: 
  Country: None (occurrence: None)
  Receive Date: 20090213
  Receipt Date: 20090209
  Transmission Date: 20090719
  Serious: Yes (Other)
  Sender: FDA-Public Use
  Company Number: A0767454A

PATIENT
  Age: 53 Year
  Sex: Female

DRUGS (3)
  1. AVANDIA [Suspect]
     Route: 048
     Dates: start: 20030401, end: 20061001
  2. NORVASC [Concomitant]
  3. LISINOPRIL [Concomitant]

REACTIONS (6)
  - ANGINA PECTORIS [None]
  - CHOKING [None]
  - DYSPNOEA [None]
  - FALL [None]
  - MUSCLE SPASMS [None]
  - PALPITATIONS [None]
